FAERS Safety Report 7241770-7 (Version None)
Quarter: 2011Q1

REPORT INFORMATION
  Report Type: 
  Country: None (occurrence: None)
  Receive Date: 20110124
  Receipt Date: 20110110
  Transmission Date: 20110831
  Serious: Yes (Death, Other)
  Sender: FDA-Public Use
  Company Number: US-CELGENEUS-163-20785-10120811

PATIENT
  Sex: Female

DRUGS (24)
  1. HEPARIN [Concomitant]
     Indication: PROPHYLAXIS
     Route: 058
  2. ASPIRIN [Concomitant]
     Route: 065
     Dates: start: 20100901
  3. HALDOL [Concomitant]
     Route: 065
  4. SPIRONOLACTONE [Concomitant]
     Route: 065
  5. THALOMID [Suspect]
     Indication: MULTIPLE MYELOMA
     Route: 048
     Dates: start: 20100908, end: 20101101
  6. CARAFATE [Concomitant]
     Route: 065
  7. SPIRIVA [Concomitant]
     Route: 065
  8. VALIUM [Concomitant]
     Route: 065
  9. COLACE [Concomitant]
     Route: 065
  10. MIRALAX [Concomitant]
     Route: 065
  11. REGLAN [Concomitant]
     Route: 065
  12. NEURONTIN [Concomitant]
     Route: 065
  13. MEGACE [Concomitant]
     Route: 065
  14. M.V.I. [Concomitant]
     Route: 065
  15. TRUSOPT [Concomitant]
     Route: 065
  16. PRILOSEC [Concomitant]
     Route: 065
  17. XALATAN [Concomitant]
     Route: 065
  18. REMERON [Concomitant]
     Route: 065
  19. DECADRON [Concomitant]
     Route: 065
  20. ZOLOFT [Concomitant]
     Route: 065
  21. COUMADIN [Concomitant]
     Indication: PROPHYLAXIS
     Route: 065
  22. ATIVAN [Concomitant]
     Route: 065
  23. ZOFRAN [Concomitant]
     Route: 065
  24. TIMENTIN [Concomitant]
     Route: 065

REACTIONS (1)
  - MYOCARDIAL INFARCTION [None]
